FAERS Safety Report 6042512-3 (Version None)
Quarter: 2009Q1

REPORT INFORMATION
  Report Type: 
  Country: None (occurrence: None)
  Receive Date: 20090116
  Receipt Date: 20090113
  Transmission Date: 20090719
  Serious: Yes (Death)
  Sender: FDA-Public Use
  Company Number: US-GENENTECH-271660

PATIENT
  Sex: Male

DRUGS (11)
  1. RANIBIZUMAB [Suspect]
     Indication: MACULAR OEDEMA
     Dosage: 0.5 MG, 1/MONTH
     Route: 031
     Dates: start: 20080206
  2. VANCOMYCIN HYDROCHLORIDE [Concomitant]
     Indication: SEPSIS
     Dosage: UNK
     Dates: start: 20080808, end: 20080815
  3. PENICILLIN G [Concomitant]
     Indication: STREPTOCOCCAL INFECTION
     Dosage: UNK
     Dates: start: 20080801, end: 20080815
  4. SIMVASTATIN [Concomitant]
     Indication: BLOOD CHOLESTEROL INCREASED
     Dosage: UNK
     Dates: start: 20010101, end: 20080915
  5. METOPROLOL [Concomitant]
     Indication: HYPERTENSION
     Dosage: UNK
     Dates: start: 20010101, end: 20080915
  6. FOLIC ACID [Concomitant]
     Indication: HYPERTENSION
     Dosage: UNK
     Dates: start: 20010101, end: 20080915
  7. LEVOTHYROXINE SODIUM [Concomitant]
     Indication: HYPOTHYROIDISM
     Dosage: UNK
     Dates: start: 20010101, end: 20080915
  8. PREVACID [Concomitant]
     Indication: GASTROOESOPHAGEAL REFLUX DISEASE
     Dosage: UNK
     Dates: start: 20030101, end: 20080915
  9. DOXAZOSIN MESYLATE [Concomitant]
     Indication: HYPERTENSION
     Dosage: UNK
     Dates: start: 20010101, end: 20080915
  10. RENA-VITE [Concomitant]
     Indication: RENAL FAILURE
     Dosage: UNK
     Dates: start: 20010101, end: 20080915
  11. TYLENOL (CAPLET) [Concomitant]
     Indication: PAIN
     Dosage: UNK
     Dates: start: 20070101, end: 20080915

REACTIONS (1)
  - DEATH [None]
